FAERS Safety Report 8860914 (Version 1)
Quarter: 2012Q4

REPORT INFORMATION
  Report Type: 
  Country: US (occurrence: US)
  Receive Date: 20121025
  Receipt Date: 20121025
  Transmission Date: 20130627
  Serious: Yes (Other)
  Sender: FDA-Public Use
  Company Number: CHPA2012US022052

PATIENT
  Age: 79 Year
  Sex: Male

DRUGS (3)
  1. BENEFIBER W/ WHEAT DEXTRIN [Suspect]
     Indication: SUPPLEMENTATION THERAPY
     Dosage: about 1.5 tablespoons a day
     Route: 048
     Dates: start: 2010
  2. LIPITOR                                 /NET/ [Concomitant]
     Dosage: 40 mg, UNK
     Dates: start: 20121017
  3. ZOCOR ^DIECKMANN^ [Concomitant]
     Dosage: UNK
     Dates: start: 2002, end: 20121015

REACTIONS (6)
  - Haemorrhoids [Recovered/Resolved]
  - Large intestine polyp [Recovered/Resolved]
  - Bowel movement irregularity [Unknown]
  - Incorrect dose administered [Unknown]
  - Expired drug administered [Unknown]
  - Wrong technique in drug usage process [Unknown]
